FAERS Safety Report 5366934-9 (Version None)
Quarter: 2007Q2

REPORT INFORMATION
  Report Type: 
  Country: None (occurrence: None)
  Receive Date: 20070622
  Receipt Date: 20070207
  Transmission Date: 20071010
  Serious: No
  Sender: FDA-Public Use
  Company Number: US-ASTRAZENECA-2007UW02632

PATIENT
  Age: 33 Year
  Sex: Female
  Weight: 47.2 kg

DRUGS (1)
  1. RHINOCORT [Suspect]
     Indication: HYPERSENSITIVITY
     Route: 045
     Dates: start: 20061101

REACTIONS (2)
  - HEADACHE [None]
  - NASAL ULCER [None]
